FAERS Safety Report 21244306 (Version 1)
Quarter: 2022Q3

REPORT INFORMATION
  Report Type: Spontaneous
  Country: FR (occurrence: FR)
  Receive Date: 20220823
  Receipt Date: 20220823
  Transmission Date: 20221027
  Serious: Yes (Hospitalization)
  Sender: FDA-Public Use
  Company Number: None

PATIENT
  Age: 39 Year
  Sex: Female
  Weight: 51 kg

DRUGS (3)
  1. FOLLITROPIN BETA [Suspect]
     Active Substance: FOLLITROPIN BETA
     Indication: In vitro fertilisation
     Dosage: 175 INTERNATIONAL UNIT, QD
     Route: 058
     Dates: start: 20220330, end: 20220408
  2. GANIRELIX ACETATE [Suspect]
     Active Substance: GANIRELIX ACETATE
     Indication: In vitro fertilisation
     Dosage: 1 DOSAGE FORM, QD
     Route: 058
     Dates: start: 20220405, end: 20220408
  3. CHORIOGONADOTROPIN ALFA [Suspect]
     Active Substance: CHORIOGONADOTROPIN ALFA
     Indication: In vitro fertilisation
     Dosage: 1 DOSAGE FORM, ONCE (FREQUENCY ALSO REPORTED AS  ^1 TOTAL^)
     Route: 058
     Dates: start: 20220409

REACTIONS (2)
  - Ascites [Recovered/Resolved]
  - Ovarian hyperstimulation syndrome [Recovered/Resolved]

NARRATIVE: CASE EVENT DATE: 20220427
